FAERS Safety Report 6974493-X (Version None)
Quarter: 2010Q3

REPORT INFORMATION
  Report Type: 
  Country: None (occurrence: None)
  Receive Date: 20100909
  Receipt Date: 20100901
  Transmission Date: 20110219
  Serious: Yes (Death, Hospitalization)
  Sender: FDA-Public Use
  Company Number: JP-MERCK-1009USA00618

PATIENT
  Age: 85 Year
  Sex: Male

DRUGS (16)
  1. JANUVIA [Suspect]
     Route: 048
     Dates: start: 20100714, end: 20100716
  2. AMARYL [Suspect]
     Route: 048
     Dates: end: 20100713
  3. AMARYL [Suspect]
     Route: 048
     Dates: start: 20100714, end: 20100716
  4. OLMETEC [Concomitant]
     Route: 048
  5. AZELASTINE HCL [Concomitant]
     Route: 048
  6. WARFARIN POTASSIUM [Concomitant]
     Route: 048
  7. PEPCID [Concomitant]
     Route: 048
  8. DIART [Concomitant]
     Route: 048
  9. SALOBEL [Concomitant]
     Route: 048
  10. MAGNESIUM OXIDE [Concomitant]
     Dosage: POR
     Route: 048
  11. LENDORMIN [Concomitant]
     Route: 048
  12. TAMSULOSIN HCL [Concomitant]
     Route: 048
  13. VESICARE [Concomitant]
     Route: 048
  14. CASODEX [Concomitant]
     Route: 048
  15. NEUROTROPIN [Concomitant]
     Route: 065
  16. FOSAMAX [Concomitant]
     Route: 048

REACTIONS (2)
  - ALTERED STATE OF CONSCIOUSNESS [None]
  - GASTROINTESTINAL HAEMORRHAGE [None]
